FAERS Safety Report 25895338 (Version 1)
Quarter: 2025Q4

REPORT INFORMATION
  Report Type: Spontaneous
  Country: US (occurrence: None)
  Receive Date: 20251004
  Receipt Date: 20251004
  Transmission Date: 20260117
  Serious: Yes (Life-Threatening, Other)
  Sender: FDA-CTU
  Company Number: None

PATIENT
  Age: 24 Year
  Sex: Male
  Weight: 83.25 kg

DRUGS (1)
  1. PSILOCYBIN [Suspect]
     Active Substance: PSILOCYBIN
     Dosage: OTHER QUANTITY : 4 CAPSULE(S);?OTHER FREQUENCY : A FAKE DRUG;?
     Route: 048
     Dates: start: 20251002, end: 20251002

REACTIONS (1)
  - Haematemesis [None]

NARRATIVE: CASE EVENT DATE: 20251002
